FAERS Safety Report 12975572 (Version 1)
Quarter: 2016Q4

REPORT INFORMATION
  Report Type: Report from Study
  Country: None (occurrence: BR)
  Receive Date: 20161125
  Receipt Date: 20161125
  Transmission Date: 20170207
  Serious: Yes (Other)
  Sender: FDA-Public Use
  Company Number: BR-ABBVIE-16P-020-1791935-00

PATIENT
  Sex: Female
  Weight: 60 kg

DRUGS (2)
  1. SYNTHROID [Suspect]
     Active Substance: LEVOTHYROXINE SODIUM
     Indication: HYPOTHYROIDISM
     Dosage: 75 MCG; MORNING, FASTED
     Route: 048
     Dates: start: 1999
  2. PANTOCAL [Concomitant]
     Indication: GASTRITIS
     Dosage: HALF HOUR AFTER SYNTHROID

REACTIONS (1)
  - Arthropathy [Unknown]
